FAERS Safety Report 6280347-7 (Version None)
Quarter: 2009Q3

REPORT INFORMATION
  Report Type: 
  Country: None (occurrence: None)
  Receive Date: 20090724
  Receipt Date: 20090717
  Transmission Date: 20100115
  Serious: Yes (Hospitalization, Other)
  Sender: FDA-Public Use
  Company Number: BR-BIOGENIDEC-2009BI020011

PATIENT
  Age: 47 Year
  Sex: Female

DRUGS (3)
  1. AVONEX [Suspect]
     Indication: MULTIPLE SCLEROSIS
     Route: 030
     Dates: start: 20040101, end: 20090301
  2. AVONEX [Suspect]
     Route: 030
     Dates: start: 20090501
  3. TYLENOL [Concomitant]

REACTIONS (7)
  - DIPLOPIA [None]
  - MENINGIOMA [None]
  - MULTIPLE SCLEROSIS RELAPSE [None]
  - NEPHROLITHIASIS [None]
  - OPTIC NERVE DISORDER [None]
  - PYELONEPHRITIS [None]
  - PYREXIA [None]
